FAERS Safety Report 4557973-6 (Version None)
Quarter: 2005Q1

REPORT INFORMATION
  Report Type: 
  Country: None (occurrence: None)
  Receive Date: 20050121
  Receipt Date: 20040324
  Transmission Date: 20050727
  Serious: Yes (Other)
  Sender: FDA-Public Use
  Company Number: US-BRISTOL-MYERS SQUIBB COMPANY-12543112

PATIENT
  Age: 42 Year
  Sex: Female
  Weight: 48 kg

DRUGS (4)
  1. SERZONE [Suspect]
     Indication: DEPRESSION
     Route: 048
     Dates: start: 19941201, end: 20020201
  2. XANAX [Concomitant]
  3. TAPAZOLE [Concomitant]
     Indication: HYPERTHYROIDISM
  4. SYNTHROID [Concomitant]

REACTIONS (2)
  - HEPATITIS B [None]
  - TRANSAMINASES INCREASED [None]
